FAERS Safety Report 9621341 (Version 1)
Quarter: 2013Q4

REPORT INFORMATION
  Report Type: Report from Study
  Country: BE (occurrence: BE)
  Receive Date: 20131015
  Receipt Date: 20131015
  Transmission Date: 20140711
  Serious: Yes (Hospitalization)
  Sender: FDA-Public Use
  Company Number: BE-ASTELLAS-2013US010758

PATIENT
  Age: 59 Year
  Sex: Female

DRUGS (2)
  1. ERLOTINIB TABLET [Suspect]
     Indication: ADENOCARCINOMA PANCREAS
     Dosage: UNK
     Route: 065
     Dates: start: 20111003, end: 20120207
  2. GEMCITABINE /01215702/ [Suspect]
     Indication: ADENOCARCINOMA PANCREAS
     Dosage: 702 MG, UNKNOWN/D
     Route: 042
     Dates: start: 20111003, end: 20120207

REACTIONS (1)
  - Oedema peripheral [Unknown]
